FAERS Safety Report 9602412 (Version 2)
Quarter: 2014Q1

REPORT INFORMATION
  Report Type: Spontaneous
  Country: FR (occurrence: FR)
  Receive Date: 20131007
  Receipt Date: 20140204
  Transmission Date: 20141002
  Serious: Yes (Hospitalization, Other)
  Sender: FDA-Public Use
  Company Number: FR-JNJFOC-20131001497

PATIENT
  Age: 82 Year
  Sex: Male
  Weight: 89 kg

DRUGS (3)
  1. XARELTO [Suspect]
     Indication: CEREBROVASCULAR ACCIDENT PROPHYLAXIS
     Route: 048
     Dates: start: 201212, end: 201302
  2. XARELTO [Suspect]
     Indication: ATRIAL FIBRILLATION
     Route: 048
     Dates: start: 201212, end: 201302
  3. KARDEGIC [Concomitant]
     Indication: ARTERIAL DISORDER
     Route: 048
     Dates: start: 201201

REACTIONS (2)
  - Anaemia [Recovered/Resolved]
  - Gastritis erosive [Not Recovered/Not Resolved]
